FAERS Safety Report 19184964 (Version 1)
Quarter: 2021Q2

REPORT INFORMATION
  Report Type: Spontaneous
  Country: US (occurrence: US)
  Receive Date: 20210427
  Receipt Date: 20210427
  Transmission Date: 20210717
  Serious: No
  Sender: FDA-Public Use
  Company Number: US-P+L DEVELOPMENTS OF NEWYORK CORPORATION-2109840

PATIENT
  Age: 74 Year
  Sex: Female
  Weight: 65.91 kg

DRUGS (1)
  1. NICOTINE POLACRILEX [Suspect]
     Active Substance: NICOTINE
     Indication: SMOKING CESSATION THERAPY
     Route: 048
     Dates: end: 20210406

REACTIONS (2)
  - Tongue discomfort [Not Recovered/Not Resolved]
  - Oral mucosal eruption [Recovering/Resolving]
